FAERS Safety Report 9164168 (Version 1)
Quarter: 2013Q1

REPORT INFORMATION
  Report Type: Spontaneous
  Country: US (occurrence: None)
  Receive Date: 20130221
  Receipt Date: 20130221
  Transmission Date: 20140127
  Serious: Yes (Hospitalization)
  Sender: FDA-Public Use
  Company Number: OTH-PAT-2013002

PATIENT
  Age: 93 Year
  Sex: Male

DRUGS (1)
  1. CYSTADANE [Suspect]
     Indication: HOMOCYSTINURIA
     Route: 048

REACTIONS (2)
  - Rectal haemorrhage [None]
  - Pneumonia [None]
